FAERS Safety Report 7283763-X (Version None)
Quarter: 2011Q1

REPORT INFORMATION
  Report Type: 
  Country: None (occurrence: None)
  Receive Date: 20110126
  Receipt Date: 20110114
  Transmission Date: 20110831
  Serious: Yes (Death)
  Sender: FDA-Public Use
  Company Number: B0695664A

PATIENT
  Age: 40 Year
  Sex: Male

DRUGS (2)
  1. PROPAFENONE HYDROCHLORIDE [Suspect]
     Dosage: ORAL
     Route: 048
  2. LISINOPRIL [Suspect]
     Dosage: ORAL
     Route: 048

REACTIONS (15)
  - QRS AXIS ABNORMAL [None]
  - HEART RATE INCREASED [None]
  - DYSARTHRIA [None]
  - ELECTROCARDIOGRAM QRS COMPLEX PROLONGED [None]
  - ELECTROCARDIOGRAM QT PROLONGED [None]
  - CONVULSION [None]
  - PULSE ABSENT [None]
  - PULMONARY CONGESTION [None]
  - UNRESPONSIVE TO STIMULI [None]
  - COMPLETED SUICIDE [None]
  - ELECTROCARDIOGRAM PR PROLONGATION [None]
  - HYPOTENSION [None]
  - CORONARY ARTERY STENOSIS [None]
  - MULTIPLE DRUG OVERDOSE INTENTIONAL [None]
  - VISCERAL CONGESTION [None]
